FAERS Safety Report 11732254 (Version 1)
Quarter: 2015Q4

REPORT INFORMATION
  Report Type: Spontaneous
  Country: US (occurrence: US)
  Receive Date: 20151110
  Receipt Date: 20151110
  Transmission Date: 20160304
  Serious: No
  Sender: FDA-Public Use
  Company Number: US-ELI_LILLY_AND_COMPANY-US201110001767

PATIENT
  Sex: Female

DRUGS (2)
  1. FORTEO [Suspect]
     Active Substance: TERIPARATIDE
     Dosage: 20 UG, QD
  2. FORTEO [Suspect]
     Active Substance: TERIPARATIDE
     Indication: OSTEOPOROSIS
     Dosage: 20 UG, QD
     Dates: start: 20110927

REACTIONS (7)
  - Weight increased [Unknown]
  - Nausea [Unknown]
  - Tooth disorder [Unknown]
  - Glaucoma [Unknown]
  - Pain in extremity [Recovering/Resolving]
  - Abdominal distension [Unknown]
  - Decreased appetite [Unknown]
